FAERS Safety Report 16929075 (Version 1)
Quarter: 2019Q4

REPORT INFORMATION
  Report Type: Report from Study
  Country: CO (occurrence: CO)
  Receive Date: 20191017
  Receipt Date: 20191017
  Transmission Date: 20200122
  Serious: Yes (Hospitalization)
  Sender: FDA-Public Use
  Company Number: CO-ROCHE-2412378

PATIENT
  Sex: Female

DRUGS (1)
  1. RITUXIMAB. [Suspect]
     Active Substance: RITUXIMAB
     Indication: ARTHRITIS
     Route: 065

REACTIONS (5)
  - Platelet count decreased [Unknown]
  - Pain [Unknown]
  - Pain in extremity [Unknown]
  - General physical health deterioration [Unknown]
  - Gait disturbance [Unknown]
